FAERS Safety Report 8496562 (Version 4)
Quarter: 2012Q4

REPORT INFORMATION
  Report Type: Report from Study
  Country: US (occurrence: US)
  Receive Date: 20120405
  Receipt Date: 20120918
  Transmission Date: 20130627
  Serious: Yes (Hospitalization, Other)
  Sender: FDA-Public Use
  Company Number: US-TEVA-2011005027

PATIENT
  Age: 29 None
  Sex: Female
  Weight: 87.62 kg

DRUGS (12)
  1. PROVIGIL [Suspect]
     Indication: HYPERSOMNIA
     Dosage: 200 Milligram Daily;
     Route: 048
     Dates: start: 201009, end: 20111004
  2. SERTRALINE [Concomitant]
     Indication: DEPRESSION
     Dosage: 50 Milligram Daily;
  3. OMEPRAZOLE [Concomitant]
     Indication: GASTROOESOPHAGEAL REFLUX DISEASE
     Dosage: 20 Milligram Daily;
  4. INSULIN GLARGINE [Concomitant]
     Indication: DIABETES MELLITUS
  5. INSULIN ASPART [Concomitant]
     Indication: DIABETES MELLITUS
  6. PRENATAL VITAMINS [Concomitant]
     Indication: PREGNANCY
     Dosage: 1 Dosage forms Daily;
     Dates: start: 20110929
  7. AMMONIUM LACTATE [Concomitant]
  8. CALAMINE [Concomitant]
  9. LACTOBACILLUS ACIDOPHILUS [Concomitant]
     Indication: PROBIOTIC THERAPY
     Dosage: 1 Dosage forms Daily;
  10. ASCORBIC ACID [Concomitant]
     Indication: SUPPLEMENTATION THERAPY
     Dosage: 1000 Milligram Daily;
  11. ONDANSETRON [Concomitant]
     Indication: DEPRESSION
     Dates: start: 20110929
  12. HYDROCODONE [Concomitant]

REACTIONS (3)
  - Supraventricular tachycardia [Recovered/Resolved]
  - Polyhydramnios [Unknown]
  - Live birth [Unknown]
